FAERS Safety Report 11201427 (Version 1)
Quarter: 2015Q2

REPORT INFORMATION
  Report Type: Spontaneous
  Country: AU (occurrence: AU)
  Receive Date: 20150619
  Receipt Date: 20150619
  Transmission Date: 20150821
  Serious: Yes (Disabling)
  Sender: FDA-Public Use
  Company Number: AU-PFIZER INC-2015167016

PATIENT
  Sex: Male

DRUGS (1)
  1. SUTENT [Suspect]
     Active Substance: SUNITINIB MALATE
     Indication: METASTATIC RENAL CELL CARCINOMA
     Dosage: 37.5 MG, CYCLIC TWO WEEKS ON ONE WEEK OFF)

REACTIONS (5)
  - Spondylolisthesis [Not Recovered/Not Resolved]
  - Muscle atrophy [Not Recovered/Not Resolved]
  - Sarcopenia [Not Recovered/Not Resolved]
  - Arthralgia [Unknown]
  - Myopathy [Unknown]

NARRATIVE: CASE EVENT DATE: 201503
